FAERS Safety Report 5066911-1 (Version None)
Quarter: 2006Q3

REPORT INFORMATION
  Report Type: 
  Country: None (occurrence: None)
  Receive Date: 20060726
  Receipt Date: 20060712
  Transmission Date: 20061208
  Serious: Yes (Hospitalization, Other)
  Sender: FDA-Public Use
  Company Number: 2006S1006410

PATIENT
  Sex: Male

DRUGS (5)
  1. AMITRIPTYLINE HCL [Suspect]
     Dosage: 100 MG; HS; PO
     Route: 048
  2. LOXAPINE [Suspect]
     Dosage: 50 MG; HS; PO
     Route: 048
  3. TRAZODONE TABLETS, USP (50 MG) [Suspect]
     Dosage: 50 MG; HS; PO
     Route: 048
  4. METAXALONE [Concomitant]
  5. IBUPROFEN [Concomitant]

REACTIONS (1)
  - MYOSITIS [None]
